FAERS Safety Report 8489039-7 (Version None)
Quarter: 2012Q3

REPORT INFORMATION
  Report Type: 
  Country: None (occurrence: None)
  Receive Date: 20120705
  Receipt Date: 20120702
  Transmission Date: 20120928
  Serious: No
  Sender: FDA-Public Use
  Company Number: US-PFIZER INC-2012159440

PATIENT
  Sex: Male

DRUGS (4)
  1. ASPIRIN [Concomitant]
     Dosage: UNK
  2. METOCLOPRAMIDE [Concomitant]
     Dosage: UNK
  3. INLYTA [Suspect]
     Indication: RENAL CANCER
     Dosage: 5 MG, 2X/DAY
     Route: 048
  4. COLACE [Concomitant]
     Dosage: UNK

REACTIONS (2)
  - PROCTALGIA [None]
  - DIARRHOEA [None]
